FAERS Safety Report 25045251 (Version 2)
Quarter: 2025Q3

REPORT INFORMATION
  Report Type: Spontaneous
  Country: US (occurrence: US)
  Receive Date: 20250306
  Receipt Date: 20250810
  Transmission Date: 20251020
  Serious: No
  Sender: ALEXION PHARMACEUTICALS
  Company Number: US-AstraZeneca-CH-00821081A

PATIENT
  Sex: Male

DRUGS (1)
  1. FASENRA [Suspect]
     Active Substance: BENRALIZUMAB
     Route: 065

REACTIONS (6)
  - Blood immunoglobulin E increased [Unknown]
  - Arthralgia [Unknown]
  - Off label use [Unknown]
  - Eye pruritus [Unknown]
  - Nasal congestion [Unknown]
  - Eosinophil count decreased [Unknown]
